FAERS Safety Report 5503781-9 (Version None)
Quarter: 2007Q4

REPORT INFORMATION
  Report Type: 
  Country: None (occurrence: None)
  Receive Date: 20071101
  Receipt Date: 20070608
  Transmission Date: 20080405
  Serious: Yes (Other)
  Sender: FDA-Public Use
  Company Number: GB-BRISTOL-MYERS SQUIBB COMPANY-13964572

PATIENT
  Age: 52 Year
  Sex: Female
  Weight: 70 kg

DRUGS (5)
  1. HYDROXYCARBAMIDE [Suspect]
     Indication: POLYCYTHAEMIA VERA
     Dosage: DRUG INTERRUPTED AND THEN RESTARTED AT A LOWER DOSE AND THEN DISCONTINUED.
     Route: 048
     Dates: start: 20070417, end: 20070514
  2. ALLOPURINOL [Concomitant]
     Indication: PROPHYLAXIS
     Route: 048
     Dates: start: 20070417, end: 20070508
  3. ASPIRIN [Concomitant]
     Indication: POLYCYTHAEMIA VERA
     Route: 048
     Dates: start: 20070301
  4. SUMATRIPTAN SUCCINATE [Concomitant]
     Route: 048
  5. LEVOTHYROXINE SODIUM [Concomitant]
     Route: 048

REACTIONS (4)
  - BACK PAIN [None]
  - NECK PAIN [None]
  - PYREXIA [None]
  - RASH MACULO-PAPULAR [None]
